FAERS Safety Report 10526638 (Version 1)
Quarter: 2014Q4

REPORT INFORMATION
  Report Type: Report from Study
  Country: JP (occurrence: JP)
  Receive Date: 20141020
  Receipt Date: 20141020
  Transmission Date: 20150528
  Serious: Yes (Other)
  Sender: FDA-Public Use
  Company Number: JP-BIOGENIDEC-2014BI107508

PATIENT
  Age: 57 Year
  Sex: Female

DRUGS (5)
  1. CONSTAN(ALPRAZOLAM) [Concomitant]
     Dates: start: 20100507, end: 20120315
  2. AVONEX [Suspect]
     Active Substance: INTERFERON BETA-1A
     Indication: RELAPSING-REMITTING MULTIPLE SCLEROSIS
     Route: 030
     Dates: start: 20100522, end: 20120315
  3. LOXONIN (LOXOPROFEN SODIUM HYDRATE) [Concomitant]
     Dates: start: 20100507, end: 20120315
  4. AVONEX [Suspect]
     Active Substance: INTERFERON BETA-1A
     Indication: RELAPSING-REMITTING MULTIPLE SCLEROSIS
     Route: 030
     Dates: start: 20100507, end: 20100521
  5. MUCOSTA(REBAMIPIDE) [Concomitant]
     Dates: start: 20100507, end: 20120315

REACTIONS (6)
  - Gamma-glutamyltransferase increased [Recovered/Resolved]
  - Hepatic enzyme increased [Recovered/Resolved]
  - Aspartate aminotransferase increased [Recovered/Resolved]
  - Blood lactate dehydrogenase increased [Recovered/Resolved]
  - Blood alkaline phosphatase increased [Recovered/Resolved]
  - Alanine aminotransferase increased [Recovered/Resolved]

NARRATIVE: CASE EVENT DATE: 20120312
